FAERS Safety Report 15953902 (Version 2)
Quarter: 2019Q1

REPORT INFORMATION
  Report Type: Spontaneous
  Country: CA (occurrence: CA)
  Receive Date: 20190212
  Receipt Date: 20190306
  Transmission Date: 20190417
  Serious: Yes (Other)
  Sender: FDA-Public Use
  Company Number: CA-TEVA-2019-CA-1008973

PATIENT
  Sex: Female

DRUGS (1)
  1. MORPHINE [Suspect]
     Active Substance: MORPHINE
     Dosage: ONCE OR TWICE DAILY
     Route: 065

REACTIONS (3)
  - Pain in extremity [Unknown]
  - Pain [Unknown]
  - Joint arthroplasty [Unknown]

NARRATIVE: CASE EVENT DATE: 201805
